FAERS Safety Report 8425620-9 (Version None)
Quarter: 2012Q2

REPORT INFORMATION
  Report Type: 
  Country: None (occurrence: None)
  Receive Date: 20120611
  Receipt Date: 20120604
  Transmission Date: 20120825
  Serious: Yes (Other)
  Sender: FDA-Public Use
  Company Number: PHHY2012JP049148

PATIENT

DRUGS (1)
  1. CARBAMAZEPINE [Suspect]

REACTIONS (1)
  - TUBULOINTERSTITIAL NEPHRITIS [None]
